FAERS Safety Report 25057183 (Version 5)
Quarter: 2025Q3

REPORT INFORMATION
  Report Type: Spontaneous
  Country: EU (occurrence: EU)
  Receive Date: 20250310
  Receipt Date: 20250806
  Transmission Date: 20251020
  Serious: Yes (Life-Threatening, Hospitalization, Other)
  Sender: IMMUNOCORE
  Company Number: EU-Medison-001048

PATIENT

DRUGS (16)
  1. TEBENTAFUSP [Suspect]
     Active Substance: TEBENTAFUSP
     Indication: Metastatic ocular melanoma
     Route: 042
     Dates: start: 20250217
  2. ALLOPURINOL [Concomitant]
     Active Substance: ALLOPURINOL
     Indication: Hyperuricaemia
     Dosage: 100 MILLIGRAM, QOD EVERY 0.5 DAY
     Route: 048
     Dates: start: 20250313
  3. ALLOPURINOL [Concomitant]
     Active Substance: ALLOPURINOL
     Indication: Prophylaxis
  4. TRAMADOL [Concomitant]
     Active Substance: TRAMADOL
     Indication: Pain
     Dates: start: 20250312
  5. METOCLOPRAMIDE [Concomitant]
     Active Substance: METOCLOPRAMIDE
     Indication: Nausea
     Dosage: 10 MILLIGRAM, QOD EVERY 0.5 DAY
     Dates: start: 20250312
  6. DROTAVERINE [Concomitant]
     Active Substance: DROTAVERINE
     Indication: Gastrointestinal pain
     Route: 042
     Dates: start: 20250212
  7. DROTAVERINE [Concomitant]
     Active Substance: DROTAVERINE
  8. POTASSIUM [Concomitant]
     Active Substance: POTASSIUM
     Indication: Product used for unknown indication
  9. MAGNESIUM [Concomitant]
     Active Substance: MAGNESIUM
     Indication: Product used for unknown indication
  10. PYRIDOXINE HYDROCHLORIDE\THIAMINE HYDROCHLORIDE [Concomitant]
     Active Substance: PYRIDOXINE HYDROCHLORIDE\THIAMINE HYDROCHLORIDE
     Indication: Product used for unknown indication
     Dates: start: 20250313, end: 20250314
  11. PANTOPRAZOLE [Concomitant]
     Active Substance: PANTOPRAZOLE
     Indication: Hernia
     Dosage: 40 MILLIGRAM, QD
  12. LACTULOSE [Concomitant]
     Active Substance: LACTULOSE
     Indication: Product used for unknown indication
  13. VITAMIN C [Concomitant]
     Active Substance: ASCORBIC ACID
     Indication: Product used for unknown indication
     Dates: start: 20250313, end: 20250314
  14. DEXAMETAZONA [DEXAMETHASONE] [Concomitant]
     Indication: Prophylaxis
     Route: 042
     Dates: start: 20250217
  15. FUROSEMIDE [Concomitant]
     Active Substance: FUROSEMIDE
     Indication: Hypertension
     Route: 042
     Dates: start: 20250213
  16. ALLOPURINOL [Concomitant]
     Active Substance: ALLOPURINOL
     Indication: Product used for unknown indication
     Dates: start: 20250313

REACTIONS (13)
  - Multiple organ dysfunction syndrome [Recovered/Resolved]
  - General physical health deterioration [Recovered/Resolved]
  - Inflammatory marker increased [Recovered/Resolved]
  - Leukocytosis [Recovered/Resolved]
  - Fatigue [Recovered/Resolved]
  - Asthenia [Recovered/Resolved]
  - Cytokine release syndrome [Recovered/Resolved]
  - Early satiety [Unknown]
  - Hyperuricaemia [Unknown]
  - Hypertensive crisis [Recovering/Resolving]
  - Hepatomegaly [Unknown]
  - Decreased appetite [Unknown]
  - Nausea [Unknown]

NARRATIVE: CASE EVENT DATE: 20250217
